FAERS Safety Report 8306716-9 (Version None)
Quarter: 2012Q2

REPORT INFORMATION
  Report Type: 
  Country: None (occurrence: None)
  Receive Date: 20120420
  Receipt Date: 20120413
  Transmission Date: 20120825
  Serious: Yes (Other)
  Sender: FDA-Public Use
  Company Number: PI-06937

PATIENT
  Sex: Female

DRUGS (1)
  1. CHLORAPREP [Suspect]
     Indication: PREOPERATIVE CARE
     Dosage: , ONCE, TOPICAL
     Route: 061
     Dates: start: 20120322

REACTIONS (2)
  - ACCIDENTAL EXPOSURE [None]
  - EYE BURNS [None]
